FAERS Safety Report 6044364-4 (Version None)
Quarter: 2009Q1

REPORT INFORMATION
  Report Type: 
  Country: None (occurrence: None)
  Receive Date: 20090120
  Receipt Date: 20090112
  Transmission Date: 20090719
  Serious: Yes (Other)
  Sender: FDA-Public Use
  Company Number: US-GENENTECH-273481

PATIENT
  Weight: 59 kg

DRUGS (1)
  1. NUTROPIN AQ [Suspect]
     Indication: GROWTH RETARDATION
     Dosage: 2.9 MG, QHS
     Route: 058
     Dates: start: 20060621

REACTIONS (2)
  - BLADDER HYPERTROPHY [None]
  - HAEMATURIA [None]
